FAERS Safety Report 19714095 (Version 1)
Quarter: 2021Q3

REPORT INFORMATION
  Report Type: Spontaneous
  Country: US (occurrence: US)
  Receive Date: 20210817
  Receipt Date: 20210817
  Transmission Date: 20211014
  Serious: Yes (Hospitalization)
  Sender: FDA-Public Use
  Company Number: None

PATIENT
  Age: 44 Year
  Sex: Male

DRUGS (6)
  1. ROSUVASTATIN. [Concomitant]
     Active Substance: ROSUVASTATIN
  2. LISINOPRIL. [Concomitant]
     Active Substance: LISINOPRIL
  3. REPATHA [Suspect]
     Active Substance: EVOLOCUMAB
     Indication: PRODUCT USED FOR UNKNOWN INDICATION
     Dosage: ?          OTHER ROUTE:VIA BODY INFUSION IN THE?
     Route: 058
     Dates: start: 20210121
  4. CARVEDILOL. [Concomitant]
     Active Substance: CARVEDILOL
  5. PRASUGREL. [Concomitant]
     Active Substance: PRASUGREL
  6. EZETIMIBE. [Concomitant]
     Active Substance: EZETIMIBE

REACTIONS (1)
  - Tumour excision [None]

NARRATIVE: CASE EVENT DATE: 20210816
